FAERS Safety Report 9425960 (Version 2)
Quarter: 2013Q3

REPORT INFORMATION
  Report Type: Spontaneous
  Country: JP (occurrence: JP)
  Receive Date: 20130729
  Receipt Date: 20130917
  Transmission Date: 20140515
  Serious: Yes (Other)
  Sender: FDA-Public Use
  Company Number: JP-009507513-1307JPN014705

PATIENT
  Age: 64 Year
  Sex: Female

DRUGS (4)
  1. JANUVIA TABLETS 50MG [Suspect]
     Indication: TYPE 2 DIABETES MELLITUS
     Dosage: 50 MG, QD
     Route: 048
     Dates: start: 201010, end: 201307
  2. OMEPRAZOLE [Concomitant]
     Dosage: UNK, BID
     Route: 048
     Dates: start: 201111, end: 201307
  3. KINEDAK [Concomitant]
  4. FASTIC [Concomitant]

REACTIONS (1)
  - Pulmonary fibrosis [Unknown]
